FAERS Safety Report 7902186-0 (Version None)
Quarter: 2011Q4

REPORT INFORMATION
  Report Type: 
  Country: None (occurrence: None)
  Receive Date: 20111108
  Receipt Date: 20111103
  Transmission Date: 20120403
  Serious: Yes (Other)
  Sender: FDA-Public Use
  Company Number: US-BAYER-2011-107054

PATIENT
  Age: 29 Year
  Sex: Female

DRUGS (1)
  1. MIRENA [Suspect]
     Indication: CONTRACEPTION
     Dosage: DAILY DOSE 20 ?G
     Route: 015
     Dates: start: 20101216

REACTIONS (13)
  - MEDICAL DEVICE COMPLICATION [None]
  - WEIGHT INCREASED [None]
  - PROCEDURAL PAIN [None]
  - HEADACHE [None]
  - VAGINAL HAEMORRHAGE [None]
  - BREAST PAIN [None]
  - ABDOMINAL PAIN [None]
  - DEVICE DISLOCATION [None]
  - COITAL BLEEDING [None]
  - DEPRESSION [None]
  - ANXIETY [None]
  - DYSPAREUNIA [None]
  - FOOD CRAVING [None]
